FAERS Safety Report 26024797 (Version 1)
Quarter: 2025Q4

REPORT INFORMATION
  Report Type: Spontaneous
  Country: MX (occurrence: MX)
  Receive Date: 20251111
  Receipt Date: 20251111
  Transmission Date: 20260117
  Serious: Yes (Death, Other)
  Sender: ABBVIE
  Company Number: MX-ABBVIE-6542230

PATIENT
  Sex: Female

DRUGS (1)
  1. RINVOQ [Suspect]
     Active Substance: UPADACITINIB
     Indication: Urinary tract infection
     Route: 048

REACTIONS (4)
  - Thrombosis [Fatal]
  - Rheumatoid arthritis [Unknown]
  - Diabetes mellitus [Unknown]
  - Surgery [Unknown]
